FAERS Safety Report 6902885-3 (Version None)
Quarter: 2010Q3

REPORT INFORMATION
  Report Type: 
  Country: None (occurrence: None)
  Receive Date: 20100803
  Receipt Date: 20080609
  Transmission Date: 20110219
  Serious: No
  Sender: FDA-Public Use
  Company Number: US-PFIZER INC-2008048706

PATIENT
  Sex: Female

DRUGS (2)
  1. LYRICA [Suspect]
     Indication: DIABETIC NEUROPATHY
  2. METHOTREXATE [Interacting]
     Indication: RHEUMATOID ARTHRITIS

REACTIONS (2)
  - DRUG INTERACTION [None]
  - FEELING ABNORMAL [None]
